FAERS Safety Report 4691245-4 (Version None)
Quarter: 2005Q2

REPORT INFORMATION
  Report Type: 
  Country: None (occurrence: None)
  Receive Date: 20050614
  Receipt Date: 20050601
  Transmission Date: 20051028
  Serious: Yes (Hospitalization, Other)
  Sender: FDA-Public Use
  Company Number: 2005082691

PATIENT
  Sex: Female
  Weight: 61.2356 kg

DRUGS (7)
  1. LIPITOR [Suspect]
     Indication: BLOOD CHOLESTEROL INCREASED
     Dosage: ORAL
     Route: 048
  2. CELEBREX [Suspect]
     Indication: NECK PAIN
     Dosage: 200 MG (200 MG, 1 IN 1 D), ORAL
     Route: 048
     Dates: start: 20000101, end: 20041101
  3. PRAVACHOL [Suspect]
     Indication: BLOOD CHOLESTEROL INCREASED
  4. NEXIUM [Concomitant]
  5. ZANTAC [Concomitant]
  6. PROPULSID [Concomitant]
  7. PRILOSEC [Concomitant]

REACTIONS (6)
  - BLOOD CHOLESTEROL INCREASED [None]
  - GASTRIC DISORDER [None]
  - HYPERTENSION [None]
  - MYOCARDIAL INFARCTION [None]
  - RASH PAPULAR [None]
  - THROMBOSIS [None]
